FAERS Safety Report 8234342-9 (Version None)
Quarter: 2012Q1

REPORT INFORMATION
  Report Type: 
  Country: None (occurrence: None)
  Receive Date: 20120326
  Receipt Date: 20120322
  Transmission Date: 20120608
  Serious: Yes (Other)
  Sender: FDA-Public Use
  Company Number: CH-ROCHE-1051897

PATIENT
  Sex: Male

DRUGS (2)
  1. MORPHINE SULFATE [Concomitant]
     Route: 065
  2. BONIVA [Suspect]
     Indication: PRODUCT USED FOR UNKNOWN INDICATION
     Route: 042
     Dates: start: 20110801

REACTIONS (1)
  - MUSCLE SPASMS [None]
